FAERS Safety Report 14625564 (Version 9)
Quarter: 2021Q1

REPORT INFORMATION
  Report Type: Spontaneous
  Country: US (occurrence: US)
  Receive Date: 20180312
  Receipt Date: 20210125
  Transmission Date: 20210419
  Serious: No
  Sender: FDA-Public Use
  Company Number: US-PFIZER INC-2018102675

PATIENT
  Age: 72 Year
  Sex: Female
  Weight: 82 kg

DRUGS (4)
  1. LYRICA [Suspect]
     Active Substance: PREGABALIN
     Dosage: 200 MG, ONCE A DAY (NIGHTLY AT BEDTIME)
     Route: 048
  2. PRISTIQ EXTENDED?RELEASE [Concomitant]
     Active Substance: DESVENLAFAXINE SUCCINATE
     Dosage: UNK
     Dates: end: 201802
  3. FUROSEMIDE. [Concomitant]
     Active Substance: FUROSEMIDE
     Indication: RENAL DISORDER
     Dosage: UNK
  4. LYRICA [Suspect]
     Active Substance: PREGABALIN
     Indication: NEUROPATHY PERIPHERAL
     Dosage: 200 MG, ONCE A DAY (NIGHTLY AT BEDTIME)
     Route: 048

REACTIONS (10)
  - Pruritus [Unknown]
  - Insomnia [Unknown]
  - Pain in extremity [Unknown]
  - Illness [Unknown]
  - Scab [Unknown]
  - Feeling abnormal [Unknown]
  - Limb discomfort [Unknown]
  - Wound haemorrhage [Unknown]
  - Visual impairment [Unknown]
  - Pain [Unknown]
